FAERS Safety Report 19367307 (Version 2)
Quarter: 2021Q2

REPORT INFORMATION
  Report Type: Not Available
  Country: ES (occurrence: ES)
  Receive Date: 20210602
  Receipt Date: 20210617
  Transmission Date: 20210717
  Serious: Yes (Other)
  Sender: FDA-Public Use
  Company Number: ES-SYNTHON BV-IN51PV21_59716

PATIENT
  Age: 71 Year
  Sex: Male

DRUGS (8)
  1. SIMBRINZA [Concomitant]
     Active Substance: BRIMONIDINE TARTRATE\BRINZOLAMIDE
     Dosage: 8 ML QUE CONTIENE 5 ML DE SUSPENSION
     Route: 065
  2. DAKTARIN [MICONAZOLE] [Concomitant]
     Active Substance: MICONAZOLE
     Dosage: TUBO CON 40 G
     Route: 065
  3. TAMSULOSIN [Suspect]
     Active Substance: TAMSULOSIN
     Indication: PRODUCT USED FOR UNKNOWN INDICATION
     Dosage: 0.4 MILLIGRAM
     Route: 048
     Dates: start: 20210313, end: 20210325
  4. OMEPRAZOL [OMEPRAZOLE] [Concomitant]
     Active Substance: OMEPRAZOLE
     Dosage: 28 CAPSULAS
     Route: 065
  5. TRAJENTA [Concomitant]
     Active Substance: LINAGLIPTIN
     Dosage: 30 COMPRIMIDOS
     Route: 065
  6. DUOTRAV [Concomitant]
     Active Substance: TIMOLOL MALEATE\TRAVOPROST
     Dosage: UNK
     Route: 065
  7. CAPENON [Concomitant]
     Active Substance: AMLODIPINE BESYLATE\OLMESARTAN MEDOXOMIL
     Dosage: UNK
     Route: 065
  8. PRAVAFENIX [Concomitant]
     Active Substance: FENOFIBRATE\PRAVASTATIN
     Dosage: 30 CAPSULAS
     Route: 065

REACTIONS (2)
  - Epidermolysis [Recovered/Resolved]
  - Epidermolysis [Unknown]

NARRATIVE: CASE EVENT DATE: 20210323
